FAERS Safety Report 6748368-5 (Version None)
Quarter: 2010Q2

REPORT INFORMATION
  Report Type: 
  Country: None (occurrence: None)
  Receive Date: 20100601
  Receipt Date: 20100521
  Transmission Date: 20101027
  Serious: No
  Sender: FDA-Public Use
  Company Number: 2007BI023703

PATIENT
  Sex: Female

DRUGS (1)
  1. TYSABRI [Suspect]
     Indication: MULTIPLE SCLEROSIS
     Route: 042
     Dates: start: 20070822, end: 20071017

REACTIONS (12)
  - DECREASED IMMUNE RESPONSIVENESS [None]
  - DIARRHOEA [None]
  - GASTROENTERITIS VIRAL [None]
  - IMMUNE SYSTEM DISORDER [None]
  - INFLUENZA [None]
  - INFLUENZA LIKE ILLNESS [None]
  - MALAISE [None]
  - MUSCLE ATROPHY [None]
  - NASOPHARYNGITIS [None]
  - ORAL HERPES [None]
  - PAIN IN EXTREMITY [None]
  - SINUSITIS [None]
